FAERS Safety Report 6092396-2 (Version None)
Quarter: 2009Q1

REPORT INFORMATION
  Report Type: 
  Country: None (occurrence: None)
  Receive Date: 20090225
  Receipt Date: 20090217
  Transmission Date: 20090719
  Serious: Yes (Hospitalization)
  Sender: FDA-Public Use
  Company Number: PHHY2009JP00734

PATIENT
  Age: 75 Year
  Sex: Male

DRUGS (8)
  1. NEORAL [Suspect]
     Indication: NEPHROTIC SYNDROME
     Dosage: 150 MG/DAY
     Dates: start: 20060905
  2. NEORAL [Suspect]
     Dosage: 75 MG/DAY
     Dates: end: 20080523
  3. NEORAL [Suspect]
     Dosage: 100 MG/DAY
     Dates: start: 20080523, end: 20080602
  4. NEORAL [Suspect]
     Dosage: 50 MG/DAY
     Dates: start: 20080613, end: 20080627
  5. PREDNISOLONE [Concomitant]
     Indication: NEPHROTIC SYNDROME
     Dosage: 20 MG/DAY
     Dates: start: 20060905
  6. PREDNISOLONE [Concomitant]
     Dosage: 1 MG/DAY
  7. PREDNISOLONE [Concomitant]
     Dosage: 20 MG/DAY
  8. PREDNISOLONE [Concomitant]
     Dosage: 40 MG/DAY

REACTIONS (9)
  - BIOPSY KIDNEY ABNORMAL [None]
  - CHILLS [None]
  - DISEASE RECURRENCE [None]
  - GASTRIC ULCER [None]
  - HAEMODIALYSIS [None]
  - INFECTION [None]
  - PYREXIA [None]
  - RENAL ARTERY ARTERIOSCLEROSIS [None]
  - RENAL FAILURE ACUTE [None]
